FAERS Safety Report 6202410-9 (Version None)
Quarter: 2009Q2

REPORT INFORMATION
  Report Type: 
  Country: None (occurrence: None)
  Receive Date: 20090526
  Receipt Date: 20090514
  Transmission Date: 20091009
  Serious: Yes (Hospitalization, Other)
  Sender: FDA-Public Use
  Company Number: US-ELI_LILLY_AND_COMPANY-US200905002955

PATIENT
  Sex: Male

DRUGS (5)
  1. ZYPREXA [Suspect]
     Indication: SCHIZOPHRENIA, PARANOID TYPE
     Dosage: 10 MG, UNK
     Dates: start: 19970101
  2. ZYPREXA [Suspect]
     Dosage: 10 MG, UNK
     Dates: start: 19980101
  3. ZYPREXA [Suspect]
     Dosage: 20 MG, 2/D
     Dates: end: 20070101
  4. PAXIL [Concomitant]
  5. ABILIFY [Concomitant]

REACTIONS (5)
  - DIABETES MELLITUS [None]
  - HEART VALVE OPERATION [None]
  - MYOCARDIAL INFARCTION [None]
  - OVERDOSE [None]
  - RENAL FAILURE [None]
